FAERS Safety Report 6536900-6 (Version None)
Quarter: 2010Q1

REPORT INFORMATION
  Report Type: 
  Country: None (occurrence: None)
  Receive Date: 20100105
  Receipt Date: 20091225
  Transmission Date: 20100710
  Serious: Yes (Death, Life-Threatening, Hospitalization, Other)
  Sender: FDA-Public Use
  Company Number: 2009JP005719

PATIENT
  Age: 56 Year
  Sex: Female
  Weight: 44.6 kg

DRUGS (19)
  1. TACROLIMUS [Suspect]
     Indication: LUPUS NEPHRITIS
     Dosage: 1 MG, D, ORAL
     Route: 048
     Dates: start: 20070222, end: 20080204
  2. TACROLIMUS [Suspect]
     Indication: LUPUS NEPHRITIS
     Dosage: 1 MG, D, ORAL
     Route: 048
     Dates: start: 20080408
  3. OMEPRAZOLE [Suspect]
     Dosage: 20 MG D
     Route: 048
     Dates: start: 20080205, end: 20080209
  4. PREDNISOLONE [Suspect]
     Indication: LUPUS NEPHRITIS
     Dosage: 10 MG, D, ORAL
     Route: 048
     Dates: end: 20080204
  5. METHYLPREDNISOLONE [Concomitant]
  6. CYCLOPHOSPHAMIDE [Concomitant]
  7. SIMVASTATIN [Concomitant]
  8. ALLOPURINOL [Concomitant]
  9. LASIX [Concomitant]
  10. BACTRIM [Concomitant]
  11. FOSAMAC (ALENDRONATE SODIUM) [Concomitant]
  12. NORVASC [Concomitant]
  13. FAMOTIDINE [Concomitant]
  14. SELBEX (TEPRENONE) [Concomitant]
  15. ARGAMATE (CALCIUM POLYSTYRENE SULFONATE) [Concomitant]
  16. DIOVAN [Concomitant]
  17. LEVOFLOXACIN [Concomitant]
  18. LANSOPRAZOLE [Concomitant]
  19. PREDNISOLONE [Concomitant]

REACTIONS (14)
  - ALTERED STATE OF CONSCIOUSNESS [None]
  - ASPERGILLOSIS [None]
  - CARDIAC FAILURE [None]
  - CELLULITIS [None]
  - CHOLECYSTITIS [None]
  - CYTOMEGALOVIRUS GASTRITIS [None]
  - GASTROINTESTINAL HAEMORRHAGE [None]
  - HEPATOBILIARY DISEASE [None]
  - HISTIOCYTOSIS HAEMATOPHAGIC [None]
  - LIVER DISORDER [None]
  - PANCYTOPENIA [None]
  - PHAGOCYTOSIS [None]
  - PULMONARY ALVEOLAR HAEMORRHAGE [None]
  - STRESS [None]
